FAERS Safety Report 25081863 (Version 1)
Quarter: 2025Q1

REPORT INFORMATION
  Report Type: Spontaneous
  Country: US (occurrence: US)
  Receive Date: 20250317
  Receipt Date: 20250317
  Transmission Date: 20250409
  Serious: Yes (Hospitalization, Other)
  Sender: NOVO NORDISK
  Company Number: US-NOVOPROD-1386718

PATIENT
  Age: 72 Year

DRUGS (1)
  1. WEGOVY [Suspect]
     Active Substance: SEMAGLUTIDE
     Indication: Weight control
     Dosage: 1.7 MG, QW
     Route: 058
     Dates: start: 20250219

REACTIONS (4)
  - Fall [Recovered/Resolved]
  - Haematoma [Recovered/Resolved]
  - Umbilical hernia [Recovered/Resolved]
  - Off label use [Recovered/Resolved]

NARRATIVE: CASE EVENT DATE: 20240910
